FAERS Safety Report 5849241-7 (Version None)
Quarter: 2008Q3

REPORT INFORMATION
  Report Type: 
  Country: None (occurrence: None)
  Receive Date: 20080815
  Receipt Date: 20080804
  Transmission Date: 20090109
  Serious: Yes (Other)
  Sender: FDA-Public Use
  Company Number: 2008-02060

PATIENT
  Age: 76 Year
  Sex: Male
  Weight: 88.4 kg

DRUGS (2)
  1. VELCADE [Suspect]
     Indication: MANTLE CELL LYMPHOMA
     Dosage: 2.6 MG, IV BOLUS
     Route: 040
     Dates: start: 20080101, end: 20080516
  2. RITUXAN [Concomitant]

REACTIONS (10)
  - BALANCE DISORDER [None]
  - DRY EYE [None]
  - FATIGUE [None]
  - LACRIMATION INCREASED [None]
  - MUSCLE TIGHTNESS [None]
  - MUSCLE TWITCHING [None]
  - MUSCULAR WEAKNESS [None]
  - OEDEMA PERIPHERAL [None]
  - PAIN IN EXTREMITY [None]
  - SOMNOLENCE [None]
